FAERS Safety Report 5409971-8 (Version None)
Quarter: 2007Q3

REPORT INFORMATION
  Report Type: 
  Country: None (occurrence: None)
  Receive Date: 20070809
  Receipt Date: 20070731
  Transmission Date: 20080115
  Serious: Yes (Other)
  Sender: FDA-Public Use
  Company Number: US-PFIZER INC-2007060909

PATIENT
  Sex: Female
  Weight: 70.5 kg

DRUGS (5)
  1. CHANTIX [Suspect]
     Indication: EX-SMOKER
     Dates: start: 20070701, end: 20070716
  2. LOTREL [Concomitant]
     Indication: HYPERTENSION
  3. NEXIUM [Concomitant]
  4. MONTELUKAST SODIUM [Concomitant]
  5. ADVAIR DISKUS 100/50 [Concomitant]

REACTIONS (3)
  - ACTIVITIES OF DAILY LIVING IMPAIRED [None]
  - MALAISE [None]
  - NAUSEA [None]
